FAERS Safety Report 5251612-7 (Version None)
Quarter: 2007Q1

REPORT INFORMATION
  Report Type: 
  Country: None (occurrence: None)
  Receive Date: 20070228
  Receipt Date: 20060926
  Transmission Date: 20070707
  Serious: No
  Sender: FDA-Public Use
  Company Number: US-GLAXOSMITHKLINE-A0621552A

PATIENT
  Age: 47 Year
  Sex: Male

DRUGS (4)
  1. LAMICTAL [Suspect]
     Indication: BIPOLAR DISORDER
     Route: 048
     Dates: start: 20060701
  2. KLONOPIN [Concomitant]
  3. LITHIUM CARBONATE [Concomitant]
  4. BENICAR [Concomitant]

REACTIONS (3)
  - COUGH [None]
  - INSOMNIA [None]
  - OROPHARYNGEAL SPASM [None]
